FAERS Safety Report 6894300-3 (Version None)
Quarter: 2010Q3

REPORT INFORMATION
  Report Type: 
  Country: None (occurrence: None)
  Receive Date: 20100802
  Receipt Date: 20100728
  Transmission Date: 20110219
  Serious: Yes (Hospitalization, Other)
  Sender: FDA-Public Use
  Company Number: JP-BAYER-201013283BYL

PATIENT
  Age: 55 Year
  Sex: Male

DRUGS (4)
  1. ADVATE [Suspect]
     Indication: FACTOR VIII DEFICIENCY
     Route: 042
  2. ADVATE [Suspect]
     Dosage: HIGH DOSES
     Route: 042
     Dates: start: 20060101
  3. NOVOSEVEN [Concomitant]
     Route: 042
  4. FEIBA [Concomitant]

REACTIONS (2)
  - FACTOR VIII INHIBITION [None]
  - MUSCLE HAEMORRHAGE [None]
